FAERS Safety Report 15832241 (Version 1)
Quarter: 2019Q1

REPORT INFORMATION
  Report Type: Spontaneous
  Country: US (occurrence: US)
  Receive Date: 20190116
  Receipt Date: 20190116
  Transmission Date: 20190417
  Serious: No
  Sender: FDA-Public Use
  Company Number: US-BAYER-2019-011631

PATIENT
  Age: 32 Year
  Sex: Female

DRUGS (1)
  1. MIRENA [Suspect]
     Active Substance: LEVONORGESTREL
     Indication: ENDOMETRIAL CANCER
     Dosage: 20 MCG/24HR, CONT
     Route: 015

REACTIONS (1)
  - Intercepted product prescribing error [None]

NARRATIVE: CASE EVENT DATE: 20190104
